FAERS Safety Report 6193075-3 (Version None)
Quarter: 2009Q2

REPORT INFORMATION
  Report Type: 
  Country: None (occurrence: None)
  Receive Date: 20090514
  Receipt Date: 20090514
  Transmission Date: 20091009
  Serious: No
  Sender: FDA-Public Use
  Company Number: None

PATIENT

DRUGS (2)
  1. DEPAKOTE ER [Suspect]
     Indication: AFFECTIVE DISORDER
     Dosage: VARIABLE DOSING
  2. DEPAKOTE [Suspect]
     Indication: SCHIZOAFFECTIVE DISORDER

REACTIONS (1)
  - AMMONIA INCREASED [None]
